FAERS Safety Report 11176229 (Version 1)
Quarter: 2015Q2

REPORT INFORMATION
  Report Type: Report from Study
  Country: FR (occurrence: FR)
  Receive Date: 20150609
  Receipt Date: 20150609
  Transmission Date: 20150821
  Serious: Yes (Other)
  Sender: FDA-Public Use
  Company Number: FR-BRISTOL-MYERS SQUIBB COMPANY-BMS-2015-035836

PATIENT
  Sex: Male
  Weight: 75 kg

DRUGS (1)
  1. NIVOLUMAB [Suspect]
     Active Substance: NIVOLUMAB
     Indication: NON-SMALL CELL LUNG CANCER
     Dosage: 225 MG, UNK
     Route: 042
     Dates: start: 20150506

REACTIONS (3)
  - Creatinine renal clearance abnormal [Unknown]
  - Drug administration error [Unknown]
  - Haemoglobin abnormal [Unknown]
